FAERS Safety Report 5492562-0 (Version None)
Quarter: 2007Q4

REPORT INFORMATION
  Report Type: 
  Country: None (occurrence: None)
  Receive Date: 20071022
  Receipt Date: 20071012
  Transmission Date: 20080405
  Serious: Yes (Other)
  Sender: FDA-Public Use
  Company Number: US-PFIZER INC-2007086824

PATIENT
  Sex: Male

DRUGS (1)
  1. DETROL [Suspect]

REACTIONS (3)
  - BLADDER CATHETERISATION [None]
  - DYSURIA [None]
  - NEPHROLITHIASIS [None]
